FAERS Safety Report 12347109 (Version 1)
Quarter: 2016Q2

REPORT INFORMATION
  Report Type: Other
  Country: JP (occurrence: JP)
  Receive Date: 20160509
  Receipt Date: 20160509
  Transmission Date: 20160815
  Serious: Yes (Hospitalization, Other)
  Sender: FDA-Public Use
  Company Number: JP-B. BRAUN MEDICAL INC.-1051657

PATIENT
  Age: 25 Year
  Sex: Female

DRUGS (5)
  1. CEFAZOLIN [Concomitant]
     Active Substance: CEFAZOLIN
     Route: 042
  2. 5-AMINOSALICYLATE ACID [Concomitant]
     Route: 048
  3. VANCOMYCIN [Concomitant]
     Active Substance: VANCOMYCIN
     Route: 048
  4. METRONIDAZOLE. [Suspect]
     Active Substance: METRONIDAZOLE
  5. PREDNISONE. [Concomitant]
     Active Substance: PREDNISONE
     Route: 042

REACTIONS (1)
  - Posterior reversible encephalopathy syndrome [None]
